FAERS Safety Report 17864245 (Version 1)
Quarter: 2020Q2

REPORT INFORMATION
  Report Type: Spontaneous
  Country: CA (occurrence: CA)
  Receive Date: 20200605
  Receipt Date: 20200605
  Transmission Date: 20200714
  Serious: Yes (Other)
  Sender: FDA-Public Use
  Company Number: CA-ORION CORPORATION ORION PHARMA-TREX2020-2194

PATIENT
  Age: 25 Year
  Sex: Female

DRUGS (2)
  1. METHOTREXATE (TRADE NAME UNKNOWN) [Suspect]
     Active Substance: METHOTREXATE
     Indication: CROHN^S DISEASE
     Route: 048
     Dates: end: 201807
  2. REMICADE [Suspect]
     Active Substance: INFLIXIMAB
     Indication: CROHN^S DISEASE
     Dosage: WITH ESCALATION OF DOSE TO EVERY 6 WEEKS
     Route: 042
     Dates: end: 201807

REACTIONS (4)
  - Infection [Unknown]
  - Crohn^s disease [Unknown]
  - Psoriasis [Unknown]
  - Product use in unapproved indication [Unknown]
